FAERS Safety Report 21871194 (Version 11)
Quarter: 2023Q2

REPORT INFORMATION
  Report Type: Spontaneous
  Country: BR (occurrence: BR)
  Receive Date: 20230117
  Receipt Date: 20230620
  Transmission Date: 20230721
  Serious: Yes (Other)
  Sender: FDA-Public Use
  Company Number: BR-SA-SAC20230116001057

PATIENT
  Age: 4 Year
  Sex: Male
  Weight: 15.4 kg

DRUGS (4)
  1. SABRIL [Suspect]
     Active Substance: VIGABATRIN
     Indication: Infantile spasms
     Dosage: 2 DF, Q12H
     Route: 048
     Dates: start: 202210
  2. SABRIL [Suspect]
     Active Substance: VIGABATRIN
     Dosage: 3.5 DF, Q12H
     Route: 048
     Dates: start: 202210
  3. FEXOFENADINE [Suspect]
     Active Substance: FEXOFENADINE HYDROCHLORIDE
     Indication: Product used for unknown indication
     Dosage: UNK
     Route: 065
  4. CLOBAZAM [Concomitant]
     Active Substance: CLOBAZAM
     Indication: Sleep disorder
     Dosage: 1 DF, QD
     Route: 048

REACTIONS (23)
  - Loss of consciousness [Recovered/Resolved]
  - Syncope [Unknown]
  - Epilepsy [Unknown]
  - Abdominal distension [Unknown]
  - Muscle spasms [Unknown]
  - Regurgitation [Unknown]
  - Dyspnoea [Unknown]
  - Decreased appetite [Unknown]
  - Thirst decreased [Unknown]
  - Constipation [Recovered/Resolved]
  - Micturition disorder [Recovered/Resolved]
  - Defaecation disorder [Recovered/Resolved]
  - Abdominal rigidity [Unknown]
  - Dyschezia [Unknown]
  - Dysuria [Unknown]
  - Product odour abnormal [Unknown]
  - Dyskinesia [Unknown]
  - Crying [Unknown]
  - Pain [Unknown]
  - Agitation [Unknown]
  - Irritability [Unknown]
  - Drug ineffective [Unknown]
  - Wrong technique in product usage process [Unknown]

NARRATIVE: CASE EVENT DATE: 20230101
